FAERS Safety Report 23637882 (Version 2)
Quarter: 2024Q1

REPORT INFORMATION
  Report Type: Spontaneous
  Country: US (occurrence: US)
  Receive Date: 20240315
  Receipt Date: 20240325
  Transmission Date: 20240410
  Serious: Yes (Hospitalization, Other)
  Sender: FDA-Public Use
  Company Number: US-TEVA-VS-3169427

PATIENT
  Sex: Female

DRUGS (4)
  1. UZEDY [Suspect]
     Active Substance: RISPERIDONE
     Indication: Product used for unknown indication
     Dosage: STRENGTH: 125 MG/0.35ML
     Route: 065
  2. UZEDY [Suspect]
     Active Substance: RISPERIDONE
     Dosage: STRENGTH: 125 MG/0.35ML
     Route: 065
     Dates: start: 20240215
  3. LITHIUM [Concomitant]
     Active Substance: LITHIUM
  4. RISPERIDONE [Suspect]
     Active Substance: RISPERIDONE
     Dosage: AT NIGHT
     Route: 048

REACTIONS (3)
  - Drug ineffective [Unknown]
  - Treatment noncompliance [Unknown]
  - Schizoaffective disorder bipolar type [Unknown]
